FAERS Safety Report 19173255 (Version 1)
Quarter: 2021Q2

REPORT INFORMATION
  Report Type: Spontaneous
  Country: US (occurrence: US)
  Receive Date: 20210423
  Receipt Date: 20210423
  Transmission Date: 20210717
  Serious: Yes (Other)
  Sender: FDA-Public Use
  Company Number: None

PATIENT
  Age: 75 Year
  Sex: Male

DRUGS (1)
  1. CASIRIVIMAB 1200MG IMDEVIMAB 1200MG [Suspect]
     Active Substance: CASIRIVIMAB\IMDEVIMAB
     Route: 042
     Dates: end: 202012

REACTIONS (2)
  - Infusion related reaction [None]
  - Hypotension [None]

NARRATIVE: CASE EVENT DATE: 20210422
